FAERS Safety Report 7062174-6 (Version None)
Quarter: 2010Q4

REPORT INFORMATION
  Report Type: 
  Country: None (occurrence: None)
  Receive Date: 20101026
  Receipt Date: 20101011
  Transmission Date: 20110411
  Serious: Yes (Other)
  Sender: FDA-Public Use
  Company Number: US-GENENTECH-284626

PATIENT

DRUGS (10)
  1. RITUXIMAB [Suspect]
     Indication: MANTLE CELL LYMPHOMA
     Dosage: 375 MG/M2, UNK
     Route: 065
  2. BORTEZOMIB [Suspect]
     Indication: MANTLE CELL LYMPHOMA
     Dosage: 1.3 MG/M2, UNK
     Route: 042
  3. BORTEZOMIB [Suspect]
     Route: 042
  4. CYCLOPHOSPHAMIDE [Suspect]
     Indication: MANTLE CELL LYMPHOMA
     Dosage: 300 MG/M2, UNK
     Route: 065
  5. DEXAMETHASONE [Suspect]
     Indication: MANTLE CELL LYMPHOMA
     Dosage: 40 MG, UNK
     Route: 050
  6. DOXORUBICIN HCL [Suspect]
     Indication: MANTLE CELL LYMPHOMA
     Route: 065
  7. VINCRISTINE [Suspect]
     Indication: MANTLE CELL LYMPHOMA
     Dosage: 1.4 MG/M2, UNK
     Route: 042
  8. METHOTREXATE [Suspect]
     Indication: MANTLE CELL LYMPHOMA
     Dosage: UNK
     Route: 042
  9. CYTARABINE [Suspect]
     Indication: MANTLE CELL LYMPHOMA
     Dosage: 3000 MG/M2, UNK
     Route: 042
  10. PREDNISOLONE EYE DROPS [Concomitant]
     Indication: INFECTION PROPHYLAXIS
     Dosage: 2 UNK, QID
     Route: 065

REACTIONS (14)
  - ANAEMIA [None]
  - ANXIETY [None]
  - CELLULITIS [None]
  - CULTURE POSITIVE [None]
  - DEVICE RELATED INFECTION [None]
  - DYSARTHRIA [None]
  - FEBRILE NEUTROPENIA [None]
  - HYPERTENSION [None]
  - LEUKOPENIA [None]
  - MANIA [None]
  - NEUROPATHY PERIPHERAL [None]
  - NEUTROPENIA [None]
  - THROMBOCYTOPENIA [None]
  - WOUND INFECTION [None]
